FAERS Safety Report 19160227 (Version 2)
Quarter: 2021Q2

REPORT INFORMATION
  Report Type: Report from Study
  Country: CO (occurrence: CO)
  Receive Date: 20210420
  Receipt Date: 20210621
  Transmission Date: 20210717
  Serious: Yes (Other)
  Sender: FDA-Public Use
  Company Number: CO-UCBSA-2021017361

PATIENT
  Age: 76 Year
  Sex: Female

DRUGS (1)
  1. BRIVARACETAM EP [Suspect]
     Active Substance: BRIVARACETAM
     Indication: EPILEPSY
     Dosage: 100 MILLIGRAM, 2X/DAY (BID)
     Route: 048
     Dates: start: 20201118, end: 20210315

REACTIONS (3)
  - Seizure [Recovering/Resolving]
  - Insomnia [Unknown]
  - Stress [Unknown]

NARRATIVE: CASE EVENT DATE: 20210201
